FAERS Safety Report 8063053-8 (Version None)
Quarter: 2012Q1

REPORT INFORMATION
  Report Type: 
  Country: None (occurrence: None)
  Receive Date: 20120123
  Receipt Date: 20120117
  Transmission Date: 20120608
  Serious: Yes (Other)
  Sender: FDA-Public Use
  Company Number: JP-ROCHE-1030549

PATIENT
  Age: 64 Year
  Sex: Male

DRUGS (1)
  1. AVASTIN [Suspect]
     Indication: MACULAR OEDEMA
     Dosage: DOSAGE IS UNCERTAIN.
     Route: 031

REACTIONS (2)
  - CORNEAL INFILTRATES [None]
  - CONJUNCTIVAL VASCULAR DISORDER [None]
